FAERS Safety Report 22632217 (Version 1)
Quarter: 2023Q2

REPORT INFORMATION
  Report Type: Spontaneous
  Country: AU (occurrence: AU)
  Receive Date: 20230623
  Receipt Date: 20230623
  Transmission Date: 20230721
  Serious: Yes (Death, Other)
  Sender: FDA-Public Use
  Company Number: AU-002147023-NVSC2023AU142169

PATIENT
  Sex: Male

DRUGS (4)
  1. ALLOPURINOL [Suspect]
     Active Substance: ALLOPURINOL
     Indication: Thyroid cancer
     Dosage: 100 MG, QD
     Route: 065
     Dates: start: 20200306
  2. PERINDOPRIL [Suspect]
     Active Substance: PERINDOPRIL
     Indication: Thyroid cancer
     Dosage: 5 MG, QD
     Route: 065
  3. RIVAROXABAN [Suspect]
     Active Substance: RIVAROXABAN
     Indication: Thyroid cancer
     Dosage: UNK, BID
     Route: 065
     Dates: start: 20230215
  4. LENVATINIB [Suspect]
     Active Substance: LENVATINIB
     Indication: Thyroid cancer
     Dosage: 24 MG
     Route: 065
     Dates: start: 20221221, end: 20230516

REACTIONS (5)
  - Death [Fatal]
  - Papillary thyroid cancer [Unknown]
  - Disease progression [Unknown]
  - Thyroid mass [Unknown]
  - Product use in unapproved indication [Unknown]
